FAERS Safety Report 8863404 (Version 2)
Quarter: 2013Q1

REPORT INFORMATION
  Report Type: Spontaneous
  Country: FR (occurrence: FR)
  Receive Date: 20121024
  Receipt Date: 20130131
  Transmission Date: 20140127
  Serious: Yes (Other)
  Sender: FDA-Public Use
  Company Number: FR-ASTRAZENECA-2012SE79087

PATIENT
  Age: 77 Year
  Sex: Female

DRUGS (2)
  1. SYMBICORT TBH [Suspect]
     Indication: DYSPNOEA
     Dosage: 160/4.5 UG PER DOSE, ONE TO TWO INHALATIONS IN THE MORNING
     Route: 055
     Dates: start: 201204
  2. PARIET [Concomitant]
     Route: 048

REACTIONS (4)
  - Ocular hypertension [Not Recovered/Not Resolved]
  - Osteoporosis [Not Recovered/Not Resolved]
  - Rash [Not Recovered/Not Resolved]
  - Dysphonia [Not Recovered/Not Resolved]
